FAERS Safety Report 9257421 (Version 3)
Quarter: 2013Q2

REPORT INFORMATION
  Report Type: Report from Study
  Country: CA (occurrence: CA)
  Receive Date: 20130426
  Receipt Date: 20130529
  Transmission Date: 20140414
  Serious: Yes (Hospitalization)
  Sender: FDA-Public Use
  Company Number: CA-JNJFOC-20130409951

PATIENT
  Age: 38 Year
  Sex: Male
  Weight: 85 kg

DRUGS (2)
  1. REMICADE [Suspect]
     Indication: DERMATITIS ATOPIC
     Dosage: V2: REPORTED AS LAST PERFUSION.
     Route: 042
     Dates: start: 2012, end: 20130220
  2. REMICADE [Suspect]
     Indication: DERMATITIS ATOPIC
     Route: 042
     Dates: start: 20120530

REACTIONS (4)
  - Oedema peripheral [Unknown]
  - Blood creatine increased [Unknown]
  - Nephrotic syndrome [Unknown]
  - Off label use [Unknown]
